FAERS Safety Report 8491965-X (Version None)
Quarter: 2012Q3

REPORT INFORMATION
  Report Type: 
  Country: None (occurrence: None)
  Receive Date: 20120706
  Receipt Date: 20120627
  Transmission Date: 20120928
  Serious: Yes (Hospitalization)
  Sender: FDA-Public Use
  Company Number: US-INCYTE CORPORATION-2012IN001146

PATIENT
  Sex: Female

DRUGS (6)
  1. ACETAMINOPHEN [Concomitant]
  2. XANAX [Concomitant]
  3. PERCOCET [Concomitant]
  4. PREDNISONE TAB [Concomitant]
  5. JAKAFI [Suspect]
     Indication: MYELOFIBROSIS
     Dosage: 20 MG, BID
     Route: 048
     Dates: start: 20120101
  6. TOPROL-XL [Concomitant]

REACTIONS (3)
  - LYMPHADENOPATHY [None]
  - SINUSITIS [None]
  - PETECHIAE [None]
